FAERS Safety Report 4627672-0 (Version None)
Quarter: 2005Q2

REPORT INFORMATION
  Report Type: 
  Country: None (occurrence: None)
  Receive Date: 20050401
  Receipt Date: 20050401
  Transmission Date: 20051028
  Serious: Yes (Life-Threatening, Hospitalization)
  Sender: FDA-Public Use
  Company Number: None

PATIENT
  Age: 26 Year
  Sex: Female
  Weight: 68 kg

DRUGS (3)
  1. LEXAPRO [Suspect]
     Indication: DEPRESSION
     Dosage: 10 MG BID ORAL
     Route: 048
     Dates: start: 20050112, end: 20050304
  2. IRON [Concomitant]
  3. AMBIEN [Concomitant]

REACTIONS (9)
  - ABDOMINAL PAIN [None]
  - CHILLS [None]
  - COUGH [None]
  - DIZZINESS [None]
  - HEADACHE [None]
  - HEPATIC ENZYME INCREASED [None]
  - NAUSEA [None]
  - PYREXIA [None]
  - VOMITING [None]
